FAERS Safety Report 25508296 (Version 1)
Quarter: 2025Q3

REPORT INFORMATION
  Report Type: Spontaneous
  Country: US (occurrence: US)
  Receive Date: 20250703
  Receipt Date: 20250703
  Transmission Date: 20251020
  Serious: Yes (Other)
  Sender: ROCHE
  Company Number: US-PFIZER INC-202500110106

PATIENT
  Age: 45 Year
  Sex: Female

DRUGS (4)
  1. TRASTUZUMAB [Suspect]
     Active Substance: TRASTUZUMAB
     Indication: Breast cancer metastatic
     Route: 065
  2. CAPECITABINE [Suspect]
     Active Substance: CAPECITABINE
     Indication: Breast cancer metastatic
     Dosage: 1500 MG CYCLIC (TAKE 3 TABLETS BY MOUTH A DAY FOR 14 DAYS. THEN 7 DAYS OFF); TAKE WITHIN 30 MIN AFTE
     Route: 048
  3. TUCATINIB [Suspect]
     Active Substance: TUCATINIB
     Indication: Breast cancer metastatic
     Dosage: 150 MG 2X/DAY (TAKE 1 TABLET (150 MG TOTAL) BY MOUTH 2 TIMES A DAY); TAKE EVERY 12 HOURS. TAKE OR WI
     Route: 048
  4. SERTRALINE [Concomitant]
     Active Substance: SERTRALINE HYDROCHLORIDE
     Dosage: DAILY
     Route: 065

REACTIONS (12)
  - Breast cancer recurrent [Unknown]
  - Diarrhoea [Unknown]
  - Abdominal pain upper [Unknown]
  - Vomiting [Unknown]
  - Fatigue [Unknown]
  - Insomnia [Unknown]
  - Anxiety [Unknown]
  - Dyspnoea [Unknown]
  - Nausea [Recovering/Resolving]
  - Product regimen confusion [Unknown]
  - Inappropriate schedule of product administration [Unknown]
  - Liver function test increased [Recovering/Resolving]
